FAERS Safety Report 4483805-0 (Version None)
Quarter: 2004Q4

REPORT INFORMATION
  Report Type: 
  Country: None (occurrence: None)
  Receive Date: 20041025
  Receipt Date: 20041013
  Transmission Date: 20050328
  Serious: Yes (Hospitalization)
  Sender: FDA-Public Use
  Company Number: US-ABBOTT-04P-163-0277569-00

PATIENT
  Sex: Female
  Weight: 80.812 kg

DRUGS (9)
  1. HUMIRA [Suspect]
     Indication: RHEUMATOID ARTHRITIS
     Route: 058
     Dates: start: 20040101, end: 20040801
  2. HUMIRA [Suspect]
     Indication: OSTEOARTHRITIS
  3. BUCINDOLOL HYDROCHLORIDE [Concomitant]
     Indication: RHEUMATOID ARTHRITIS
     Route: 048
     Dates: start: 20020101
  4. HYDROXYCHLOROQUINE PHOSPHATE [Concomitant]
     Indication: RHEUMATOID ARTHRITIS
     Route: 048
     Dates: start: 20000101, end: 20040101
  5. LEXAPRO [Concomitant]
     Indication: DEPRESSION
     Route: 048
     Dates: start: 20000101
  6. CYCLOBENZAPRINE HYDROCHLORIDE [Concomitant]
     Indication: PAIN
     Route: 048
     Dates: start: 19780101, end: 20040901
  7. VICODIN [Concomitant]
     Indication: PAIN
     Route: 048
     Dates: start: 20020101
  8. ROBOXIN [Concomitant]
     Indication: PAIN
     Route: 048
     Dates: start: 20040901
  9. ATENOLOL [Concomitant]
     Indication: HYPERTENSION
     Route: 048
     Dates: start: 20040901

REACTIONS (2)
  - BLOOD PRESSURE INCREASED [None]
  - LOCALISED OSTEOARTHRITIS [None]
